FAERS Safety Report 26086912 (Version 2)
Quarter: 2025Q4

REPORT INFORMATION
  Report Type: Spontaneous
  Country: EU (occurrence: EU)
  Receive Date: 20251125
  Receipt Date: 20251216
  Transmission Date: 20260118
  Serious: Yes (Other)
  Sender: AUROBINDO
  Company Number: EU-JNJFOC-20251032664

PATIENT
  Age: 80 Year
  Sex: Male
  Weight: 72 kg

DRUGS (12)
  1. LOPERAMIDE HYDROCHLORIDE [Suspect]
     Active Substance: LOPERAMIDE HYDROCHLORIDE
     Indication: Diarrhoea
     Dosage: UNK
     Route: 065
  2. UPTRAVI [Suspect]
     Active Substance: SELEXIPAG
     Indication: Pulmonary arterial hypertension
     Dosage: 200 MICROGRAM, 0.5 TIMES A DAY
     Route: 061
  3. UPTRAVI [Suspect]
     Active Substance: SELEXIPAG
     Dosage: 400 MICROGRAM, 0.5 TIMES A DAY
     Route: 061
  4. UPTRAVI [Suspect]
     Active Substance: SELEXIPAG
     Dosage: 600 MICROGRAM, 0.5 TIMES A DAY
     Route: 061
  5. UPTRAVI [Suspect]
     Active Substance: SELEXIPAG
     Dosage: 800 MICROGRAM, 0.5 TIMES A DAY
     Route: 061
  6. UPTRAVI [Suspect]
     Active Substance: SELEXIPAG
     Dosage: 1000 MICROGRAM, 0.5 TIMES A DAY
     Route: 061
  7. UPTRAVI [Suspect]
     Active Substance: SELEXIPAG
     Dosage: 1200 MICROGRAM, 0.5 TIMES A DAY
     Route: 061
  8. UPTRAVI [Suspect]
     Active Substance: SELEXIPAG
     Dosage: 1400 MICROGRAM, 0.5 TIMES A DAY
     Route: 061
  9. TADALAFIL [Concomitant]
     Active Substance: TADALAFIL
     Indication: Product used for unknown indication
     Dosage: UNK
     Route: 065
  10. BOSENTAN [Concomitant]
     Active Substance: BOSENTAN
     Indication: Product used for unknown indication
     Dosage: UNK
     Route: 065
  11. OXYGEN [Concomitant]
     Active Substance: OXYGEN
     Indication: Product used for unknown indication
     Dosage: UNK
     Route: 065
  12. GLICLAZIDE [Concomitant]
     Active Substance: GLICLAZIDE
     Indication: Product used for unknown indication
     Dosage: UNK
     Route: 065

REACTIONS (19)
  - Neuropathy peripheral [Not Recovered/Not Resolved]
  - Pain in extremity [Not Recovered/Not Resolved]
  - Myalgia [Recovered/Resolved]
  - Heart rate increased [Not Recovered/Not Resolved]
  - Pain in jaw [Not Recovered/Not Resolved]
  - Arthralgia [Not Recovered/Not Resolved]
  - Fatigue [Not Recovered/Not Resolved]
  - Dyspnoea [Unknown]
  - Hypoglycaemia [Unknown]
  - Constipation [Unknown]
  - Chapped lips [Not Recovered/Not Resolved]
  - Dry mouth [Not Recovered/Not Resolved]
  - Peripheral coldness [Not Recovered/Not Resolved]
  - Hot flush [Recovering/Resolving]
  - Nasal congestion [Not Recovered/Not Resolved]
  - Diarrhoea [Unknown]
  - Blood pressure fluctuation [Unknown]
  - Restless legs syndrome [Not Recovered/Not Resolved]
  - Headache [Recovered/Resolved]

NARRATIVE: CASE EVENT DATE: 20250917
